FAERS Safety Report 15296658 (Version 1)
Quarter: 2018Q3

REPORT INFORMATION
  Report Type: Report from Study
  Country: AU (occurrence: AU)
  Receive Date: 20180820
  Receipt Date: 20180820
  Transmission Date: 20181010
  Serious: Yes (Death)
  Sender: FDA-Public Use
  Company Number: AU-CELGENEUS-AUS-2015066818

PATIENT

DRUGS (2)
  1. ABRAXANE [Suspect]
     Active Substance: PACLITAXEL
     Indication: OFF LABEL USE
  2. ABRAXANE [Suspect]
     Active Substance: PACLITAXEL
     Indication: CHOLANGIOCARCINOMA
     Route: 041
     Dates: start: 20140716, end: 20140716

REACTIONS (2)
  - Hepatic failure [Fatal]
  - Cholangiocarcinoma [Fatal]
